FAERS Safety Report 5075863-X (Version None)
Quarter: 2006Q3

REPORT INFORMATION
  Report Type: 
  Country: None (occurrence: None)
  Receive Date: 20060807
  Receipt Date: 20060807
  Transmission Date: 20061208
  Serious: Yes (Other)
  Sender: FDA-Public Use
  Company Number: None

PATIENT
  Age: 61 Year
  Sex: Male
  Weight: 67.586 kg

DRUGS (4)
  1. TAC (PROFESSIONAL ARTS PHARMACY) [Suspect]
     Indication: HYPOAESTHESIA ORAL
     Dosage: TEETH WERE SWABBED   1
     Dates: start: 20060726
  2. LIDOCAINE 2% [Suspect]
  3. TETRACAINE 4% [Suspect]
  4. PHENYLEPHRINE 2% [Suspect]

REACTIONS (8)
  - AIRWAY COMPLICATION OF ANAESTHESIA [None]
  - BRONCHOSPASM [None]
  - CHILLS [None]
  - COUGH [None]
  - HYPOREFLEXIA [None]
  - MUSCULAR WEAKNESS [None]
  - RESPIRATORY DISORDER [None]
  - WHEEZING [None]
